FAERS Safety Report 6875127-5 (Version None)
Quarter: 2010Q3

REPORT INFORMATION
  Report Type: 
  Country: None (occurrence: None)
  Receive Date: 20100727
  Receipt Date: 20040519
  Transmission Date: 20110219
  Serious: No
  Sender: FDA-Public Use
  Company Number: US-PFIZER INC-2003172028US

PATIENT
  Sex: Female

DRUGS (6)
  1. CORTEF [Suspect]
     Route: 048
     Dates: start: 20020801
  2. PREVACID [Concomitant]
  3. XANAX [Concomitant]
  4. PULMICORT [Concomitant]
  5. BENADRYL [Concomitant]
  6. ACETAMINOPHEN [Concomitant]

REACTIONS (12)
  - ABDOMINAL DISCOMFORT [None]
  - ABDOMINAL PAIN [None]
  - ACNE [None]
  - ANXIETY [None]
  - FLUID RETENTION [None]
  - HIRSUTISM [None]
  - INSOMNIA [None]
  - MALAISE [None]
  - MENSTRUATION IRREGULAR [None]
  - MYALGIA [None]
  - PRURITUS [None]
  - URTICARIA [None]
